FAERS Safety Report 4287555-5 (Version None)
Quarter: 2004Q1

REPORT INFORMATION
  Report Type: 
  Country: None (occurrence: None)
  Receive Date: 20040209
  Receipt Date: 20030724
  Transmission Date: 20041129
  Serious: No
  Sender: FDA-Public Use
  Company Number: US-GLAXOSMITHKLINE-A0418098A

PATIENT
  Age: 34 Year
  Sex: Male

DRUGS (2)
  1. PAXIL CR [Suspect]
     Indication: PANIC DISORDER
     Dosage: 12.5MG UNKNOWN
     Route: 048
     Dates: start: 20030601
  2. TOPROL-XL [Concomitant]

REACTIONS (5)
  - ANXIETY [None]
  - DRUG INEFFECTIVE [None]
  - INSOMNIA [None]
  - NERVOUSNESS [None]
  - PARAESTHESIA [None]
